FAERS Safety Report 8479768-3 (Version None)
Quarter: 2012Q2

REPORT INFORMATION
  Report Type: 
  Country: None (occurrence: None)
  Receive Date: 20120629
  Receipt Date: 20120620
  Transmission Date: 20120825
  Serious: Yes (Hospitalization)
  Sender: FDA-Public Use
  Company Number: BR-ASTRAZENECA-2012SE42077

PATIENT
  Age: 82 Year
  Sex: Male
  Weight: 54 kg

DRUGS (4)
  1. ATACAND HCT [Suspect]
     Dosage: 16/12.5 MG ONCE DAILY
     Route: 048
     Dates: end: 20120401
  2. SOMALGIN CARDIO [Concomitant]
  3. ATENOLOL [Suspect]
     Route: 048
  4. AMIODARONE HYDROCHLORIDE [Concomitant]
     Route: 048

REACTIONS (1)
  - ARRHYTHMIA [None]
